FAERS Safety Report 4859452-5 (Version None)
Quarter: 2005Q4

REPORT INFORMATION
  Report Type: 
  Country: None (occurrence: None)
  Receive Date: 20051219
  Receipt Date: 20050607
  Transmission Date: 20060501
  Serious: No
  Sender: FDA-Public Use
  Company Number: US-GLAXOSMITHKLINE-A0562546A

PATIENT
  Age: 40 Year
  Sex: Female

DRUGS (3)
  1. NICODERM CQ [Suspect]
  2. NICORETTE [Suspect]
  3. NICORETTE (MINT) [Suspect]

REACTIONS (4)
  - APPLICATION SITE URTICARIA [None]
  - HYPERSENSITIVITY [None]
  - PHARMACEUTICAL PRODUCT COMPLAINT [None]
  - STOMACH DISCOMFORT [None]
